FAERS Safety Report 25617705 (Version 1)
Quarter: 2025Q3

REPORT INFORMATION
  Report Type: Spontaneous
  Country: US (occurrence: US)
  Receive Date: 20250729
  Receipt Date: 20250729
  Transmission Date: 20251020
  Serious: Yes (Life-Threatening, Hospitalization, Disabling)
  Sender: PFIZER
  Company Number: US-PFIZER INC-202500150096

PATIENT
  Sex: Female

DRUGS (1)
  1. VOXELOTOR [Suspect]
     Active Substance: VOXELOTOR
     Indication: Sickle cell disease
     Dates: end: 20241002

REACTIONS (2)
  - Pain [Recovered/Resolved with Sequelae]
  - Dialysis [Recovered/Resolved with Sequelae]

NARRATIVE: CASE EVENT DATE: 20241002
